FAERS Safety Report 15979545 (Version 1)
Quarter: 2019Q1

REPORT INFORMATION
  Report Type: Spontaneous
  Country: US (occurrence: US)
  Receive Date: 20190217
  Receipt Date: 20190217
  Transmission Date: 20190418
  Serious: Yes (Other)
  Sender: FDA-Public Use
  Company Number: None

PATIENT
  Age: 57 Year
  Sex: Female
  Weight: 92.7 kg

DRUGS (2)
  1. DULOXETINE HYDROCHLORIDE. [Suspect]
     Active Substance: DULOXETINE HYDROCHLORIDE
     Indication: FIBROMYALGIA
     Dosage: ?          QUANTITY:1 CAPSULE(S);?
     Route: 048
  2. DULOXETINE HYDROCHLORIDE. [Suspect]
     Active Substance: DULOXETINE HYDROCHLORIDE
     Indication: DEPRESSION
     Dosage: ?          QUANTITY:1 CAPSULE(S);?
     Route: 048

REACTIONS (11)
  - Chest pain [None]
  - Headache [None]
  - Anxiety [None]
  - Burning sensation [None]
  - Tremor [None]
  - Withdrawal syndrome [None]
  - Emotional disorder [None]
  - Conversion disorder [None]
  - Paraesthesia [None]
  - Hypophagia [None]
  - Depression [None]

NARRATIVE: CASE EVENT DATE: 20190203
